FAERS Safety Report 6657480-0 (Version None)
Quarter: 2010Q1

REPORT INFORMATION
  Report Type: 
  Country: None (occurrence: None)
  Receive Date: 20100330
  Receipt Date: 20100322
  Transmission Date: 20100710
  Serious: Yes (Death, Life-Threatening, Hospitalization, Disabling, Other)
  Sender: FDA-Public Use
  Company Number: PHHY2010US08229

PATIENT
  Sex: Male

DRUGS (18)
  1. GLEEVEC [Suspect]
     Indication: ACUTE LYMPHOCYTIC LEUKAEMIA
     Dosage: 400 MG, QD
     Route: 048
     Dates: start: 20071023, end: 20100218
  2. EXJADE [Suspect]
     Indication: IRON OVERLOAD
     Dosage: 2000 MG, QD
     Route: 048
     Dates: start: 20080613, end: 20100218
  3. CALCIUM WITH VITAMIN D [Concomitant]
     Dosage: 2 UNK, BID
     Route: 048
  4. FOSAMAX [Concomitant]
     Dosage: 70 MG, QW
     Route: 048
  5. MAGNESIUM CHELATE [Concomitant]
     Dosage: 133 MG, TID
     Route: 048
  6. ZANTAC [Concomitant]
     Dosage: 150 MG, QD
     Route: 048
  7. AMICAR [Concomitant]
     Dosage: 1250 MG, QID PRN
  8. LIDODERM [Concomitant]
     Dosage: 5 %, QD
     Route: 061
  9. SUDAFED 12 HOUR [Concomitant]
     Dosage: 30 MG, Q6H PRN
  10. SENOKOT [Concomitant]
     Dosage: UNK
     Route: 048
  11. ZOFRAN [Concomitant]
     Dosage: 8 MG, QD
     Route: 048
  12. SCOPOLAMINE [Concomitant]
     Dosage: 1.5 MG, Q72H
     Route: 061
  13. REGLAN [Concomitant]
     Dosage: 10 MG, Q4H
     Route: 048
  14. NEURONTIN [Concomitant]
     Dosage: 900 MG, Q8H
     Route: 048
  15. DOXYCYCLINE [Concomitant]
     Dosage: 100 MG, BID
     Route: 048
  16. TRIAMTERENE [Concomitant]
     Dosage: 50 MG, TIW (MWF)
     Route: 048
  17. METHADONE [Concomitant]
     Dosage: 2.5 MG, AM
     Route: 048
  18. METHADONE [Concomitant]
     Dosage: 5 MG, PM
     Route: 048

REACTIONS (13)
  - ABASIA [None]
  - ACUTE LYMPHOCYTIC LEUKAEMIA [None]
  - APHASIA [None]
  - CONFUSIONAL STATE [None]
  - CONSTIPATION [None]
  - HAEMORRHAGE [None]
  - INFECTION [None]
  - MALIGNANT NEOPLASM PROGRESSION [None]
  - MENTAL STATUS CHANGES [None]
  - PAIN [None]
  - PLATELET COUNT DECREASED [None]
  - PYREXIA [None]
  - UNRESPONSIVE TO STIMULI [None]
